FAERS Safety Report 21105651 (Version 2)
Quarter: 2022Q3

REPORT INFORMATION
  Report Type: Spontaneous
  Country: CA (occurrence: CA)
  Receive Date: 20220720
  Receipt Date: 20220722
  Transmission Date: 20221027
  Serious: Yes (Other)
  Sender: FDA-Public Use
  Company Number: CA-PFIZER INC-202200962288

PATIENT
  Age: 67 Year
  Sex: Male

DRUGS (2)
  1. XALKORI [Interacting]
     Active Substance: CRIZOTINIB
     Dosage: UNK
  2. TAMSULOSIN [Interacting]
     Active Substance: TAMSULOSIN

REACTIONS (4)
  - Asthenia [Recovered/Resolved]
  - Dizziness [Recovered/Resolved]
  - Drug interaction [Recovered/Resolved]
  - Hypotension [Recovered/Resolved]
